FAERS Safety Report 7976386-8 (Version None)
Quarter: 2011Q4

REPORT INFORMATION
  Report Type: 
  Country: None (occurrence: None)
  Receive Date: 20111213
  Receipt Date: 20111019
  Transmission Date: 20120403
  Serious: No
  Sender: FDA-Public Use
  Company Number: US-AMGEN-USASP2011054133

PATIENT
  Age: 47 Year
  Sex: Female

DRUGS (1)
  1. ENBREL [Suspect]
     Indication: RHEUMATOID ARTHRITIS
     Dosage: 50 MG, QWK
     Dates: start: 20110718

REACTIONS (6)
  - DIARRHOEA [None]
  - ABDOMINAL PAIN LOWER [None]
  - DYSPEPSIA [None]
  - HUNGER [None]
  - NAUSEA [None]
  - VOMITING [None]
